FAERS Safety Report 7910527-3 (Version None)
Quarter: 2011Q4

REPORT INFORMATION
  Report Type: 
  Country: None (occurrence: None)
  Receive Date: 20111111
  Receipt Date: 20111031
  Transmission Date: 20120403
  Serious: Yes (Hospitalization)
  Sender: FDA-Public Use
  Company Number: PHHY2011FR96852

PATIENT
  Sex: Male

DRUGS (5)
  1. PERMIXON [Concomitant]
     Dosage: 160 MG, QD
  2. TASIGNA [Suspect]
     Indication: CHRONIC MYELOID LEUKAEMIA
     Dosage: 400 MG, BID
     Route: 048
     Dates: start: 20101022
  3. ASPIRIN [Concomitant]
     Dosage: 160 MG, QD
     Route: 048
  4. IRBESARTAN [Concomitant]
     Dosage: 150 MG, QD
     Route: 048
  5. BIMATOPROST AND TIMOLOL MALEATE [Concomitant]
     Dosage: 1 DF, QD

REACTIONS (4)
  - ACUTE CORONARY SYNDROME [None]
  - ARTERIOSCLEROSIS [None]
  - CHEST PAIN [None]
  - ACUTE MYOCARDIAL INFARCTION [None]
